FAERS Safety Report 7087145-5 (Version None)
Quarter: 2010Q4

REPORT INFORMATION
  Report Type: 
  Country: None (occurrence: None)
  Receive Date: 20101106
  Receipt Date: 20101101
  Transmission Date: 20110411
  Serious: No
  Sender: FDA-Public Use
  Company Number: US-WYE-H18498510

PATIENT
  Age: 82 Year
  Sex: Female
  Weight: 49.94 kg

DRUGS (2)
  1. ADVIL [Suspect]
     Indication: BACK PAIN
     Dosage: ONE TABLET EVERY FOUR HOURS
     Route: 048
     Dates: start: 20101015
  2. ADVIL [Suspect]
     Indication: PAIN IN EXTREMITY

REACTIONS (2)
  - CONSTIPATION [None]
  - DRUG INEFFECTIVE [None]
